FAERS Safety Report 8602398-7 (Version None)
Quarter: 2012Q3

REPORT INFORMATION
  Report Type: 
  Country: None (occurrence: None)
  Receive Date: 20120817
  Receipt Date: 20120803
  Transmission Date: 20120928
  Serious: Yes (Hospitalization)
  Sender: FDA-Public Use
  Company Number: US-ROCHE-1097404

PATIENT
  Sex: Female

DRUGS (6)
  1. ZOMETA [Concomitant]
  2. HERCEPTIN [Suspect]
     Indication: BREAST CANCER METASTATIC
  3. TAXOL [Concomitant]
  4. NAVELBINE [Concomitant]
  5. XELODA [Suspect]
     Indication: BREAST CANCER METASTATIC
  6. TYKERB [Concomitant]

REACTIONS (4)
  - NO THERAPEUTIC RESPONSE [None]
  - PNEUMONIA [None]
  - METASTASES TO SKIN [None]
  - RASH [None]
